FAERS Safety Report 15948839 (Version 1)
Quarter: 2019Q1

REPORT INFORMATION
  Report Type: Spontaneous
  Country: FI (occurrence: FI)
  Receive Date: 20190211
  Receipt Date: 20190211
  Transmission Date: 20190417
  Serious: Yes (Disabling)
  Sender: FDA-Public Use
  Company Number: FI-AMGEN-FINSP2018183955

PATIENT
  Age: 70 Year
  Sex: Male
  Weight: 68 kg

DRUGS (5)
  1. DEXAMETHASONE. [Concomitant]
     Active Substance: DEXAMETHASONE
     Indication: PLASMA CELL MYELOMA
  2. CEFUROXIME. [Suspect]
     Active Substance: CEFUROXIME
     Indication: INFECTION
     Dosage: 1.5 MCG, TID
     Route: 065
     Dates: start: 20181207, end: 20181213
  3. XGEVA [Suspect]
     Active Substance: DENOSUMAB
     Indication: PLASMA CELL MYELOMA
     Dosage: 120 MG, Q4WK
     Route: 058
     Dates: start: 20181107, end: 20181207
  4. BORTEZOMIB. [Concomitant]
     Active Substance: BORTEZOMIB
     Indication: PLASMA CELL MYELOMA
  5. CYCLOPHOSPHAMIDE. [Concomitant]
     Active Substance: CYCLOPHOSPHAMIDE
     Indication: PLASMA CELL MYELOMA

REACTIONS (2)
  - Pyrexia [Unknown]
  - Acute kidney injury [Not Recovered/Not Resolved]

NARRATIVE: CASE EVENT DATE: 20181211
